FAERS Safety Report 9506401 (Version 2)
Quarter: 2014Q1

REPORT INFORMATION
  Report Type: Spontaneous
  Country: US (occurrence: None)
  Receive Date: 20130301
  Receipt Date: 20140304
  Transmission Date: 20141002
  Serious: Yes (Hospitalization, Other)
  Sender: FDA-Public Use
  Company Number: RB-42261-2012

PATIENT
  Sex: Male

DRUGS (2)
  1. SUBUTEX [Suspect]
     Indication: DRUG DEPENDENCE
     Route: 064
     Dates: start: 20111122, end: 20120625
  2. PRENATAL [Suspect]
     Indication: PREGNANCY
     Route: 064

REACTIONS (3)
  - Drug withdrawal syndrome neonatal [None]
  - Foetal exposure during pregnancy [None]
  - Exposure during breast feeding [None]
